FAERS Safety Report 17881696 (Version 3)
Quarter: 2021Q2

REPORT INFORMATION
  Report Type: Report from Study
  Country: IN (occurrence: IN)
  Receive Date: 20200610
  Receipt Date: 20210602
  Transmission Date: 20210717
  Serious: Yes (Hospitalization, Other)
  Sender: FDA-Public Use
  Company Number: NVSC2019IN086461

PATIENT
  Sex: Male

DRUGS (4)
  1. SCAPHO [Suspect]
     Active Substance: SECUKINUMAB
     Indication: PSORIATIC ARTHROPATHY
     Dosage: 150 MG, QMO
     Route: 058
     Dates: start: 20191227
  2. SCAPHO [Suspect]
     Active Substance: SECUKINUMAB
     Indication: PSORIASIS
     Dosage: 150 MG
     Route: 058
  3. SCAPHO [Suspect]
     Active Substance: SECUKINUMAB
     Indication: RENAL DISORDER
     Dosage: 150 MG QMO
     Route: 058
     Dates: start: 20210525
  4. SCAPHO [Suspect]
     Active Substance: SECUKINUMAB
     Indication: PAIN
     Dosage: 150 MG
     Route: 058
     Dates: start: 20201207

REACTIONS (7)
  - Product prescribing error [Unknown]
  - Renal failure [Unknown]
  - Haemoptysis [Unknown]
  - Mouth haemorrhage [Unknown]
  - Product dose omission issue [Unknown]
  - End stage renal disease [Unknown]
  - Product use in unapproved indication [Unknown]
